FAERS Safety Report 7197574-7 (Version None)
Quarter: 2011Q1

REPORT INFORMATION
  Report Type: 
  Country: None (occurrence: None)
  Receive Date: 20101227
  Receipt Date: 20101216
  Transmission Date: 20110831
  Serious: Yes (Other)
  Sender: FDA-Public Use
  Company Number: US-JNJFOC-20100109123

PATIENT
  Sex: Female
  Weight: 50.8 kg

DRUGS (1)
  1. EXTRA STRENGTH TYLENOL PM [Suspect]
     Indication: PRODUCT USED FOR UNKNOWN INDICATION

REACTIONS (3)
  - PRODUCT QUALITY ISSUE [None]
  - GASTROENTERITIS [None]
  - DEHYDRATION [None]
